FAERS Safety Report 16745739 (Version 1)
Quarter: 2019Q3

REPORT INFORMATION
  Report Type: Spontaneous
  Country: US (occurrence: US)
  Receive Date: 20190827
  Receipt Date: 20190827
  Transmission Date: 20191005
  Serious: Yes (Other)
  Sender: FDA-Public Use
  Company Number: US-SA-2018SA086421

PATIENT
  Age: 73 Year
  Sex: Female
  Weight: 76.6 kg

DRUGS (10)
  1. DOXORUBICIN [Concomitant]
     Active Substance: DOXORUBICIN
  2. CYTOXAN [Concomitant]
     Active Substance: CYCLOPHOSPHAMIDE
  3. MELOXICAM. [Concomitant]
     Active Substance: MELOXICAM
  4. ATENOLOL. [Concomitant]
     Active Substance: ATENOLOL
  5. SYNTHROID [Concomitant]
     Active Substance: LEVOTHYROXINE SODIUM
  6. TAXOTERE [Suspect]
     Active Substance: DOCETAXEL
     Indication: BREAST CANCER FEMALE
     Dosage: 141 MG,Q3W
     Route: 042
     Dates: start: 20121227, end: 20121227
  7. TAXOTERE [Suspect]
     Active Substance: DOCETAXEL
     Dosage: 80 MG, Q3W
     Route: 042
     Dates: start: 20130117, end: 20130117
  8. LOVASTATIN. [Concomitant]
     Active Substance: LOVASTATIN
  9. NEOSAR [Concomitant]
     Active Substance: CYCLOPHOSPHAMIDE
  10. TAXOTERE [Suspect]
     Active Substance: DOCETAXEL
     Dosage: 141 MG,Q3W
     Route: 042
     Dates: start: 20130207, end: 20130207

REACTIONS (2)
  - Alopecia [Recovering/Resolving]
  - Psychological trauma [Unknown]

NARRATIVE: CASE EVENT DATE: 20130801
